FAERS Safety Report 13524847 (Version 1)
Quarter: 2017Q2

REPORT INFORMATION
  Report Type: Spontaneous
  Country: US (occurrence: US)
  Receive Date: 20170508
  Receipt Date: 20170508
  Transmission Date: 20170830
  Serious: No
  Sender: FDA-Public Use
  Company Number: US-ROCHE-1125011

PATIENT
  Sex: Female

DRUGS (9)
  1. ZOMETA [Concomitant]
     Active Substance: ZOLEDRONIC ACID
  2. GEMZAR [Concomitant]
     Active Substance: GEMCITABINE HYDROCHLORIDE
  3. CYTOXAN [Concomitant]
     Active Substance: CYCLOPHOSPHAMIDE
  4. NAVELBINE [Concomitant]
     Active Substance: VINORELBINE TARTRATE
  5. XELODA [Concomitant]
     Active Substance: CAPECITABINE
     Route: 065
  6. AVASTIN [Suspect]
     Active Substance: BEVACIZUMAB
     Indication: PRODUCT USED FOR UNKNOWN INDICATION
     Route: 065
     Dates: start: 20060309
  7. ADRIAMYCIN [Concomitant]
     Active Substance: DOXORUBICIN HYDROCHLORIDE
     Route: 065
     Dates: start: 20060309
  8. TAXOL [Concomitant]
     Active Substance: PACLITAXEL
  9. ABRAXANE [Concomitant]
     Active Substance: PACLITAXEL

REACTIONS (1)
  - Disease progression [Unknown]
